FAERS Safety Report 21476721 (Version 1)
Quarter: 2022Q4

REPORT INFORMATION
  Report Type: Spontaneous
  Country: US (occurrence: US)
  Receive Date: 20221019
  Receipt Date: 20221019
  Transmission Date: 20230113
  Serious: No
  Sender: FDA-Public Use
  Company Number: US-ALLERGAN-2204947US

PATIENT
  Sex: Female

DRUGS (2)
  1. LINZESS [Suspect]
     Active Substance: LINACLOTIDE
     Indication: Cyclic vomiting syndrome
     Dosage: 72 ?G
     Dates: start: 20211104
  2. LINZESS [Suspect]
     Active Substance: LINACLOTIDE
     Indication: Constipation

REACTIONS (1)
  - Off label use [Unknown]
